APPROVED DRUG PRODUCT: PROCHLORPERAZINE EDISYLATE
Active Ingredient: PROCHLORPERAZINE EDISYLATE
Strength: EQ 5MG BASE/ML
Dosage Form/Route: INJECTABLE;INJECTION
Application: A214107 | Product #001 | TE Code: AP
Applicant: GLAND PHARMA LTD
Approved: Sep 22, 2021 | RLD: No | RS: No | Type: RX